FAERS Safety Report 4516242-0 (Version None)
Quarter: 2004Q4

REPORT INFORMATION
  Report Type: 
  Country: None (occurrence: None)
  Receive Date: 20041129
  Receipt Date: 20041118
  Transmission Date: 20050328
  Serious: Yes (Hospitalization)
  Sender: FDA-Public Use
  Company Number: US-JNJFOC-20040700884

PATIENT
  Age: 50 Year
  Sex: Male

DRUGS (4)
  1. MOTRIN [Suspect]
     Indication: SINUS CONGESTION
     Dosage: 1-2 DAILY PRN
     Dates: start: 20040101, end: 20040601
  2. VITAMIN C (ASCORBIC ACID) [Concomitant]
  3. VITAMIN A [Concomitant]
  4. ZINC (ZINC) [Concomitant]

REACTIONS (7)
  - BLOOD PRESSURE DIASTOLIC INCREASED [None]
  - CHEST PAIN [None]
  - DIZZINESS [None]
  - DYSPEPSIA [None]
  - DYSPNOEA [None]
  - HYPERHIDROSIS [None]
  - PALLOR [None]
